FAERS Safety Report 15345742 (Version 1)
Quarter: 2018Q3

REPORT INFORMATION
  Report Type: Report from Study
  Country: GB (occurrence: GB)
  Receive Date: 20180904
  Receipt Date: 20180904
  Transmission Date: 20181010
  Serious: Yes (Other)
  Sender: FDA-Public Use
  Company Number: GB-UCBSA-2018039648

PATIENT
  Age: 47 Year
  Sex: Female

DRUGS (1)
  1. CERTOLIZUMAB PEGOL RA AUTOCLICKS [Suspect]
     Active Substance: CERTOLIZUMAB PEGOL
     Indication: RHEUMATOID ARTHRITIS
     Dosage: 400 MG, EV 2 WEEKS(QOW)
     Route: 058
     Dates: start: 20180823

REACTIONS (7)
  - Dyspnoea [Unknown]
  - Paraesthesia oral [Unknown]
  - Dizziness [Unknown]
  - Pharyngeal paraesthesia [Unknown]
  - Wheezing [Unknown]
  - Dysphagia [Unknown]
  - Dysgeusia [Unknown]

NARRATIVE: CASE EVENT DATE: 20180823
